FAERS Safety Report 19216207 (Version 1)
Quarter: 2021Q2

REPORT INFORMATION
  Report Type: Spontaneous
  Country: US (occurrence: US)
  Receive Date: 20210504
  Receipt Date: 20210504
  Transmission Date: 20210717
  Serious: Yes (Hospitalization)
  Sender: FDA-Public Use
  Company Number: None

PATIENT
  Age: 30 Year
  Sex: Female
  Weight: 61.2 kg

DRUGS (7)
  1. INFLECTRA [Suspect]
     Active Substance: INFLIXIMAB-DYYB
     Indication: SPONDYLITIS
     Dosage: ?          OTHER FREQUENCY:ONCE;?
     Route: 042
     Dates: start: 20210225, end: 20210225
  2. SOLU?CORTEF 100 MG/2 ML SOLUTION FOR INJECTION [Concomitant]
     Dates: start: 20210225, end: 20210225
  3. LIDOCAINE 1% SOLUTION FOR INJECTION [Concomitant]
     Dates: start: 20210225, end: 20210225
  4. DIPHENHYDRAMINE 50 MG/ML SOLUTION FOR INJECTION [Concomitant]
     Dates: start: 20210225, end: 20210225
  5. DIPHENHYDRAMINE 25 MG CAPSULE [Concomitant]
     Dates: start: 20210225, end: 20210225
  6. ACETAMINOPHEN 325 MG TABLET [Concomitant]
     Dates: start: 20210225, end: 20210225
  7. SODIUM CHLORIDE 0.9% IV SOLUTION [Concomitant]
     Dates: start: 20210225, end: 20210225

REACTIONS (1)
  - Rash [None]

NARRATIVE: CASE EVENT DATE: 20210306
